FAERS Safety Report 15150420 (Version 2)
Quarter: 2018Q3

REPORT INFORMATION
  Report Type: Report from Study
  Country: GT (occurrence: GT)
  Receive Date: 20180716
  Receipt Date: 20180731
  Transmission Date: 20181010
  Serious: Yes (Other)
  Sender: FDA-Public Use
  Company Number: GT-BAYER-2018-129782

PATIENT
  Age: 40 Year
  Sex: Female

DRUGS (4)
  1. YAZ [Suspect]
     Active Substance: DROSPIRENONE\ETHINYL ESTRADIOL
     Indication: LEIOMYOMA
     Dosage: UNK
     Route: 048
     Dates: start: 201801
  2. QLAIRA [Suspect]
     Active Substance: DIENOGEST\ESTRADIOL VALERATE
     Indication: LEIOMYOMA
  3. QLAIRA [Suspect]
     Active Substance: DIENOGEST\ESTRADIOL VALERATE
     Indication: MENORRHAGIA
     Dosage: UNK
     Route: 048
     Dates: start: 2015
  4. PARAMETHADIONE. [Suspect]
     Active Substance: PARAMETHADIONE
     Route: 048

REACTIONS (14)
  - Menorrhagia [None]
  - Product prescribing issue [None]
  - Headache [None]
  - Uterine leiomyoma [None]
  - Product use in unapproved indication [None]
  - Off label use [None]
  - Adnexa uteri pain [None]
  - Back pain [None]
  - Limb discomfort [None]
  - Vein disorder [None]
  - Vomiting [None]
  - Off label use [None]
  - Product use in unapproved indication [None]
  - Depressed mood [None]

NARRATIVE: CASE EVENT DATE: 201801
